FAERS Safety Report 23710045 (Version 2)
Quarter: 2024Q2

REPORT INFORMATION
  Report Type: Spontaneous
  Country: IE (occurrence: IE)
  Receive Date: 20240405
  Receipt Date: 20240424
  Transmission Date: 20240715
  Serious: Yes (Hospitalization, Other)
  Sender: FDA-Public Use
  Company Number: IE-Long Grove-000043

PATIENT
  Age: 23 Year
  Sex: Male

DRUGS (2)
  1. METHADONE [Suspect]
     Active Substance: METHADONE HYDROCHLORIDE
  2. COCAINE [Suspect]
     Active Substance: COCAINE

REACTIONS (10)
  - Drug abuse [Unknown]
  - Cerebral hypoperfusion [Recovered/Resolved]
  - Liver injury [Recovered/Resolved]
  - Muscle necrosis [Recovered/Resolved]
  - Ischaemic cerebral infarction [Recovered/Resolved]
  - Pneumonia aspiration [Recovered/Resolved]
  - Loss of consciousness [Recovered/Resolved]
  - Blister [Recovered/Resolved]
  - Vasoconstriction [Recovered/Resolved]
  - Nerve compression [Recovered/Resolved]
